FAERS Safety Report 8806556 (Version 1)
Quarter: 2012Q4

REPORT INFORMATION
  Report Type: 
  Country: AU (occurrence: AU)
  Receive Date: 20120925
  Receipt Date: 20120925
  Transmission Date: 20130627
  Serious: Yes (Disabling)
  Sender: FDA-Public Use
  Company Number: AU-009507513-1209AUS007594

PATIENT
  Age: 36 Year
  Sex: Male

DRUGS (1)
  1. NASONEX [Suspect]
     Dosage: 2 dose unspecified, qd
     Route: 045
     Dates: start: 20120612, end: 20120625

REACTIONS (3)
  - Abnormal behaviour [Recovered/Resolved]
  - Feelings of worthlessness [Recovered/Resolved]
  - Depression [Recovered/Resolved]
